FAERS Safety Report 8812814 (Version 1)
Quarter: 2012Q4

REPORT INFORMATION
  Report Type: 
  Country: US (occurrence: US)
  Receive Date: 20120927
  Receipt Date: 20120927
  Transmission Date: 20130627
  Serious: No
  Sender: FDA-Public Use
  Company Number: US-AMGEN-USASP2012046200

PATIENT
  Age: 80 Year
  Sex: Female

DRUGS (2)
  1. XGEVA [Suspect]
     Indication: OSTEOPOROSIS POSTMENOPAUSAL
     Dosage: 120 mg, q3mo
     Dates: start: 20120705
  2. ADVAIR [Concomitant]
     Indication: BRONCHIECTASIS
     Dosage: UNK

REACTIONS (10)
  - Bone pain [Unknown]
  - Eye swelling [Unknown]
  - Eye pain [Unknown]
  - Arthralgia [Unknown]
  - Musculoskeletal pain [Unknown]
  - Decreased appetite [Not Recovered/Not Resolved]
  - Pain in extremity [Not Recovered/Not Resolved]
  - Asthenia [Not Recovered/Not Resolved]
  - Cough [Not Recovered/Not Resolved]
  - Nausea [Unknown]
